FAERS Safety Report 16257625 (Version 1)
Quarter: 2019Q2

REPORT INFORMATION
  Report Type: Report from Study
  Country: US (occurrence: US)
  Receive Date: 20190430
  Receipt Date: 20190430
  Transmission Date: 20190711
  Serious: Yes (Hospitalization)
  Sender: FDA-Public Use
  Company Number: US-AGIOS-1904US01117

PATIENT

DRUGS (1)
  1. TIBSOVO [Suspect]
     Active Substance: IVOSIDENIB
     Indication: ACUTE MYELOID LEUKAEMIA
     Dosage: 250 MILLIGRAM, 2 TABLETS (500MG)  QD
     Route: 048
     Dates: start: 201903

REACTIONS (5)
  - Dyspnoea [Unknown]
  - Mental disorder due to a general medical condition [Unknown]
  - Hospitalisation [Unknown]
  - Fatigue [Unknown]
  - Neoplasm malignant [Unknown]
